FAERS Safety Report 19086803 (Version 1)
Quarter: 2021Q2

REPORT INFORMATION
  Report Type: Spontaneous
  Country: US (occurrence: US)
  Receive Date: 20210401
  Receipt Date: 20210401
  Transmission Date: 20210717
  Serious: Yes (Hospitalization)
  Sender: FDA-Public Use
  Company Number: None

PATIENT
  Age: 75 Year
  Sex: Male
  Weight: 82 kg

DRUGS (1)
  1. PEMBROLIZUMAB (PEMBROLIZUMAB 25 MG/ML INJ,SOLN,4ML) [Suspect]
     Active Substance: PEMBROLIZUMAB
     Indication: NEOPLASM MALIGNANT
     Dosage: ?          OTHER ROUTE:IV?
     Dates: start: 20210301, end: 20210301

REACTIONS (5)
  - Pulmonary embolism [None]
  - Respiratory failure [None]
  - Dyspnoea [None]
  - Pneumonitis [None]
  - Hypoxia [None]

NARRATIVE: CASE EVENT DATE: 20210305
